FAERS Safety Report 19316990 (Version 2)
Quarter: 2021Q2

REPORT INFORMATION
  Report Type: Report from Study
  Country: US (occurrence: US)
  Receive Date: 20210527
  Receipt Date: 20210609
  Transmission Date: 20210717
  Serious: Yes (Hospitalization)
  Sender: FDA-Public Use
  Company Number: US-JNJFOC-20210539353

PATIENT
  Age: 66 Year
  Sex: Female
  Weight: 65.83 kg

DRUGS (4)
  1. SPRAVATO [Suspect]
     Active Substance: ESKETAMINE
     Dates: start: 20201106, end: 20210511
  2. SPRAVATO [Suspect]
     Active Substance: ESKETAMINE
     Indication: PRODUCT USED FOR UNKNOWN INDICATION
     Dates: start: 20201103, end: 20201103
  3. SPRAVATO [Suspect]
     Active Substance: ESKETAMINE
     Dates: start: 20210518, end: 20210518
  4. STEROIDS [Concomitant]
     Active Substance: UNSPECIFIED INGREDIENT
     Indication: BACK PAIN

REACTIONS (2)
  - Hypertension [Unknown]
  - Sedation [Recovered/Resolved]

NARRATIVE: CASE EVENT DATE: 20210518
